FAERS Safety Report 7082597-9 (Version None)
Quarter: 2010Q3

REPORT INFORMATION
  Report Type: 
  Country: None (occurrence: None)
  Receive Date: 20100929
  Receipt Date: 20100610
  Transmission Date: 20110219
  Serious: No
  Sender: FDA-Public Use
  Company Number: US-WYE-H15861910

PATIENT
  Age: 55 Year
  Sex: Female
  Weight: 63.56 kg

DRUGS (8)
  1. PRISTIQ [Suspect]
     Indication: NERVOUSNESS
     Dosage: 50 MG 1X PER 1 DAY, ORAL
     Route: 048
     Dates: start: 20100501, end: 20100609
  2. AGGRENOX (ASPIRIN/DEPYRIDAMOLE) [Concomitant]
  3. CRESTOR [Concomitant]
  4. ACTOS [Concomitant]
  5. LISINOPRIL [Concomitant]
  6. ATENOLOL [Concomitant]
  7. AMBIEN [Concomitant]
  8. DIPHENHYDRAMINE HCL [Concomitant]

REACTIONS (5)
  - FATIGUE [None]
  - FEELING ABNORMAL [None]
  - INDIFFERENCE [None]
  - INTENTIONAL DRUG MISUSE [None]
  - IRRITABILITY [None]
